FAERS Safety Report 4354756-7 (Version None)
Quarter: 2004Q2

REPORT INFORMATION
  Report Type: 
  Country: None (occurrence: None)
  Receive Date: 20040507
  Receipt Date: 20040426
  Transmission Date: 20050107
  Serious: Yes (Hospitalization)
  Sender: FDA-Public Use
  Company Number: 200411711FR

PATIENT
  Sex: Female

DRUGS (2)
  1. FLAGYL [Suspect]
     Indication: HAEMORRHOID OPERATION
     Dosage: DOSE: 1-1-1; DOSE UNIT: UNITS
     Route: 048
     Dates: start: 20040419, end: 20040421
  2. ACETAMINOPHEN W/ PROPOXYPHENE HCL [Suspect]

REACTIONS (5)
  - DIFFICULTY IN WALKING [None]
  - FEELING HOT AND COLD [None]
  - LOSS OF CONSCIOUSNESS [None]
  - MOTOR DYSFUNCTION [None]
  - VERTIGO [None]
